FAERS Safety Report 16179072 (Version 1)
Quarter: 2019Q2

REPORT INFORMATION
  Report Type: Spontaneous
  Country: US (occurrence: US)
  Receive Date: 20190410
  Receipt Date: 20190410
  Transmission Date: 20190711
  Serious: No
  Sender: FDA-Public Use
  Company Number: US-BAYER-2019-069707

PATIENT
  Age: 15 Year
  Sex: Female
  Weight: 92 kg

DRUGS (3)
  1. LEVSIN [Concomitant]
     Active Substance: HYOSCYAMINE SULFATE
  2. TYLENOL WITH CODEINE [Concomitant]
     Active Substance: ACETAMINOPHEN\CODEINE PHOSPHATE
  3. MIRALAX [Suspect]
     Active Substance: POLYETHYLENE GLYCOL 3350
     Indication: GASTRIC DISORDER
     Dosage: 17 MG, TID
     Route: 048
     Dates: start: 2006

REACTIONS (2)
  - Off label use [Recovered/Resolved]
  - Inappropriate schedule of product administration [None]
